FAERS Safety Report 20874519 (Version 5)
Quarter: 2022Q3

REPORT INFORMATION
  Report Type: Report from Study
  Country: US (occurrence: US)
  Receive Date: 20220525
  Receipt Date: 20220805
  Transmission Date: 20221027
  Serious: No
  Sender: FDA-Public Use
  Company Number: US-NOVARTISTESTPH-NVSC2022US120467

PATIENT
  Age: 13 Year
  Sex: Male

DRUGS (2)
  1. OMNITROPE [Suspect]
     Active Substance: SOMATROPIN
     Indication: Hypopituitarism
     Dosage: 0.40 ML
     Route: 058
     Dates: start: 20220404
  2. OMNITROPE [Suspect]
     Active Substance: SOMATROPIN
     Dosage: 2.0 MG, QD
     Route: 058
     Dates: start: 20220524

REACTIONS (5)
  - Adverse drug reaction [Unknown]
  - Injection site bruising [Unknown]
  - Injection site pain [Unknown]
  - Nausea [Recovered/Resolved]
  - Vomiting [Recovered/Resolved]

NARRATIVE: CASE EVENT DATE: 20220524
